FAERS Safety Report 23751840 (Version 2)
Quarter: 2024Q4

REPORT INFORMATION
  Report Type: Spontaneous
  Country: IN (occurrence: IN)
  Receive Date: 20240417
  Receipt Date: 20241008
  Transmission Date: 20250115
  Serious: Yes (Hospitalization, Other)
  Sender: PFIZER
  Company Number: IN-PFIZER INC-PV202200096219

PATIENT
  Age: 61 Year
  Sex: Female

DRUGS (8)
  1. LORLATINIB [Suspect]
     Active Substance: LORLATINIB
     Indication: Non-small cell lung cancer metastatic
     Dosage: 100 MG, 1X/DAY
     Route: 048
     Dates: start: 202208
  2. LORLATINIB [Suspect]
     Active Substance: LORLATINIB
     Dosage: 75 MG, 1X/DAY
     Route: 048
     Dates: end: 20240224
  3. ETIDOXIN [Concomitant]
     Dosage: 1 DF, 1X/DAY(150, A/C)
  4. ATORVASTATIN [Concomitant]
     Active Substance: ATORVASTATIN
     Dosage: 1 DF, 1X/DAY (20, H/S) X 3 MONTH
  5. HERBALS\WITHANIA SOMNIFERA ROOT [Concomitant]
     Active Substance: HERBALS\WITHANIA SOMNIFERA ROOT
     Dosage: 120 S/C STAT
     Route: 058
  6. SODIUM PICOSULFATE [Concomitant]
     Active Substance: SODIUM PICOSULFATE
     Dosage: 2 DF, 1X/DAY (H/S)
  7. THYROXINE [Concomitant]
     Active Substance: LEVOTHYROXINE
     Route: 048
  8. THYROXINE [Concomitant]
     Active Substance: LEVOTHYROXINE
     Dosage: 200 MG, DAILY

REACTIONS (16)
  - Loss of consciousness [Recovering/Resolving]
  - Dyspnoea [Unknown]
  - Blood cholesterol increased [Unknown]
  - Pulmonary oedema [Unknown]
  - Pulmonary artery dilatation [Unknown]
  - Anal fissure [Unknown]
  - Pain [Unknown]
  - Constipation [Unknown]
  - Blood thyroid stimulating hormone increased [Unknown]
  - Blood triglycerides increased [Unknown]
  - Oral disorder [Unknown]
  - Headache [Unknown]
  - Atelectasis [Unknown]
  - Cardiomegaly [Unknown]
  - Abdominal pain [Unknown]
  - Abdominal distension [Unknown]

NARRATIVE: CASE EVENT DATE: 20240201
